FAERS Safety Report 20918573 (Version 2)
Quarter: 2022Q2

REPORT INFORMATION
  Report Type: Spontaneous
  Country: IT (occurrence: IT)
  Receive Date: 20220606
  Receipt Date: 20220609
  Transmission Date: 20220721
  Serious: Yes (Other)
  Sender: FDA-Public Use
  Company Number: IT-MLMSERVICE-20220520-3571243-1

PATIENT
  Age: 16 Year
  Sex: Female
  Weight: 43 kg

DRUGS (4)
  1. LANSOPRAZOLE [Suspect]
     Active Substance: LANSOPRAZOLE
     Indication: Gastritis erosive
     Dosage: 15 MG, QD
     Route: 048
  2. PERICIAZINE [Concomitant]
     Active Substance: PERICIAZINE
     Indication: Euphoric mood
     Dosage: BEDTIME
     Route: 065
  3. PERICIAZINE [Concomitant]
     Active Substance: PERICIAZINE
     Indication: Sleep disorder
  4. LITHIUM [Concomitant]
     Active Substance: LITHIUM
     Indication: Bipolar disorder
     Dosage: 300MG, Q8
     Route: 065

REACTIONS (2)
  - Catatonia [Recovered/Resolved]
  - Depression [Recovered/Resolved]
